FAERS Safety Report 20080893 (Version 59)
Quarter: 2025Q2

REPORT INFORMATION
  Report Type: Report from Study
  Country: US (occurrence: US)
  Receive Date: 20211117
  Receipt Date: 20250620
  Transmission Date: 20250716
  Serious: Yes (Hospitalization, Other)
  Sender: TAKEDA
  Company Number: US-TAKEDA-2021TUS033682

PATIENT
  Sex: Female
  Weight: 59 kg

DRUGS (57)
  1. HUMAN IMMUNOGLOBULIN G [Suspect]
     Active Substance: HUMAN IMMUNOGLOBULIN G
     Indication: Immunodeficiency common variable
     Dosage: 40 GRAM, Q2WEEKS
  2. HUMAN IMMUNOGLOBULIN G [Suspect]
     Active Substance: HUMAN IMMUNOGLOBULIN G
     Dosage: 20 GRAM, 1/WEEK
     Dates: start: 20100315
  3. HUMAN IMMUNOGLOBULIN G [Suspect]
     Active Substance: HUMAN IMMUNOGLOBULIN G
     Dosage: 40 GRAM, Q2WEEKS
     Dates: start: 20160504
  4. HUMAN IMMUNOGLOBULIN G [Suspect]
     Active Substance: HUMAN IMMUNOGLOBULIN G
     Dosage: 20 GRAM, 1/WEEK
     Dates: start: 20161031
  5. HUMAN IMMUNOGLOBULIN G [Suspect]
     Active Substance: HUMAN IMMUNOGLOBULIN G
     Dosage: 40 GRAM, Q2WEEKS
     Dates: start: 20201027
  6. HUMAN IMMUNOGLOBULIN G [Suspect]
     Active Substance: HUMAN IMMUNOGLOBULIN G
     Dosage: 20 GRAM, Q2WEEKS
  7. HUMAN IMMUNOGLOBULIN G [Suspect]
     Active Substance: HUMAN IMMUNOGLOBULIN G
     Dosage: 20 GRAM, 1/WEEK
  8. GAMMAGARD S/D [Suspect]
     Active Substance: HUMAN IMMUNOGLOBULIN G
     Indication: Immunodeficiency common variable
     Dosage: 20 MILLIGRAM, 1/WEEK
  9. GAMMAGARD S/D [Suspect]
     Active Substance: HUMAN IMMUNOGLOBULIN G
     Dosage: 20 GRAM, 1/WEEK
  10. DEXAMETHASONE [Suspect]
     Active Substance: DEXAMETHASONE
     Indication: Product used for unknown indication
  11. PREDNISONE [Suspect]
     Active Substance: PREDNISONE
     Indication: Product used for unknown indication
  12. ATENOLOL [Suspect]
     Active Substance: ATENOLOL
     Indication: Product used for unknown indication
  13. TYVASO [Suspect]
     Active Substance: TREPROSTINIL
     Indication: Product used for unknown indication
  14. REMODULIN [Suspect]
     Active Substance: TREPROSTINIL
     Indication: Product used for unknown indication
  15. CARDIZEM [Suspect]
     Active Substance: DILTIAZEM HYDROCHLORIDE
     Indication: Product used for unknown indication
  16. EPINEPHRINE [Concomitant]
     Active Substance: EPINEPHRINE
  17. DIPHENHYDRAMINE HYDROCHLORIDE [Concomitant]
     Active Substance: DIPHENHYDRAMINE HYDROCHLORIDE
  18. HEPARIN [Concomitant]
     Active Substance: HEPARIN SODIUM
  19. SODIUM CHLORIDE [Concomitant]
     Active Substance: SODIUM CHLORIDE
  20. LIDOCAINE\PRILOCAINE [Concomitant]
     Active Substance: LIDOCAINE\PRILOCAINE
  21. IRON [Concomitant]
     Active Substance: IRON
  22. ACETAMINOPHEN [Concomitant]
     Active Substance: ACETAMINOPHEN
  23. SODIUM CHLORIDE [Concomitant]
     Active Substance: SODIUM CHLORIDE
  24. LEXAPRO [Concomitant]
     Active Substance: ESCITALOPRAM OXALATE
  25. SOLU-CORTEF [Concomitant]
     Active Substance: HYDROCORTISONE SODIUM SUCCINATE
  26. LOSARTAN POTASSIUM [Concomitant]
     Active Substance: LOSARTAN POTASSIUM
  27. DAPSONE [Concomitant]
     Active Substance: DAPSONE
  28. NAPROXEN [Concomitant]
     Active Substance: NAPROXEN
  29. ALBUTEROL [Concomitant]
     Active Substance: ALBUTEROL
  30. BENADRYL [Concomitant]
     Active Substance: DIPHENHYDRAMINE HYDROCHLORIDE
  31. TYLENOL [Concomitant]
     Active Substance: ACETAMINOPHEN
  32. Lmx [Concomitant]
  33. HYDROCODONE [Concomitant]
     Active Substance: HYDROCODONE
  34. EPIPEN [Concomitant]
     Active Substance: EPINEPHRINE
  35. BUDESONIDE [Concomitant]
     Active Substance: BUDESONIDE
  36. HEPARIN SODIUM [Concomitant]
     Active Substance: HEPARIN SODIUM
  37. ACETAMINOPHEN\HYDROCODONE [Concomitant]
     Active Substance: ACETAMINOPHEN\HYDROCODONE
  38. OXYGEN [Concomitant]
     Active Substance: OXYGEN
  39. VERAPAMIL HCL [Concomitant]
     Active Substance: VERAPAMIL HYDROCHLORIDE
  40. HYDROCORTISONE [Concomitant]
     Active Substance: HYDROCORTISONE
  41. LOSARTAN [Concomitant]
     Active Substance: LOSARTAN
  42. POTASSIUM [Concomitant]
     Active Substance: POTASSIUM
  43. MAGNESIUM [Concomitant]
     Active Substance: MAGNESIUM
  44. DILTIAZEM [Concomitant]
     Active Substance: DILTIAZEM
  45. VERAPAMIL [Concomitant]
     Active Substance: VERAPAMIL HYDROCHLORIDE
  46. SPIRONOLACTONE [Concomitant]
     Active Substance: SPIRONOLACTONE
  47. METHYLPREDNISOLONE [Concomitant]
     Active Substance: METHYLPREDNISOLONE
  48. LIDOCAINE [Concomitant]
     Active Substance: LIDOCAINE
  49. DIPHENHYDRAMINE [Concomitant]
     Active Substance: DIPHENHYDRAMINE
     Indication: Product used for unknown indication
  50. POTASSIUM CHLORIDE [Concomitant]
     Active Substance: POTASSIUM CHLORIDE
  51. EXCEDRIN EXTRA STRENGTH [Concomitant]
     Active Substance: ACETAMINOPHEN\ASPIRIN\CAFFEINE
  52. BENZONATATE [Concomitant]
     Active Substance: BENZONATATE
  53. ZYRTEC [Concomitant]
     Active Substance: CETIRIZINE HYDROCHLORIDE
  54. PRILOSEC OTC [Concomitant]
     Active Substance: OMEPRAZOLE MAGNESIUM
  55. FUROSEMIDE [Concomitant]
     Active Substance: FUROSEMIDE
  56. FERROUS SULFATE [Concomitant]
     Active Substance: FERROUS SULFATE
  57. AMOXICILLIN AND CLAVULANATE POTASSIUM [Concomitant]
     Active Substance: AMOXICILLIN\CLAVULANATE POTASSIUM

REACTIONS (78)
  - Haematochezia [Unknown]
  - Eye infection [Not Recovered/Not Resolved]
  - Pulmonary hypertension [Unknown]
  - Interstitial lung disease [Unknown]
  - Pneumonia [Unknown]
  - Cytomegalovirus gastrointestinal infection [Unknown]
  - Pulmonary arterial hypertension [Unknown]
  - Psychotic disorder [Unknown]
  - Breast discomfort [Unknown]
  - Joint swelling [Unknown]
  - Respiratory tract infection [Unknown]
  - Scar [Unknown]
  - Drug hypersensitivity [Unknown]
  - Hypovitaminosis [Unknown]
  - Bloody discharge [Unknown]
  - Sinus disorder [Unknown]
  - Productive cough [Not Recovered/Not Resolved]
  - Bronchitis [Unknown]
  - Productive cough [Not Recovered/Not Resolved]
  - Neoplasm skin [Unknown]
  - Oxygen consumption increased [Unknown]
  - Impaired work ability [Unknown]
  - Weight decreased [Unknown]
  - Tachypnoea [Unknown]
  - Crepitations [Unknown]
  - Nervousness [Unknown]
  - Respiratory tract infection [Not Recovered/Not Resolved]
  - Wheelchair user [Unknown]
  - Infection [Unknown]
  - Pulmonary function test abnormal [Unknown]
  - Lung disorder [Unknown]
  - Gait inability [Unknown]
  - Feeling of despair [Unknown]
  - Product preparation error [Unknown]
  - Joint stiffness [Unknown]
  - Haemoglobin decreased [Unknown]
  - Blood iron decreased [Unknown]
  - Catheter site discolouration [Unknown]
  - Catheter site pruritus [Unknown]
  - Suture related complication [Unknown]
  - Gastrointestinal polyp [Unknown]
  - Ear infection [Unknown]
  - Ear pain [Unknown]
  - Blood pressure decreased [Unknown]
  - Heart rate increased [Unknown]
  - Sinusitis [Not Recovered/Not Resolved]
  - Feeling abnormal [Unknown]
  - Somnolence [Unknown]
  - Infusion site reaction [Unknown]
  - Infusion site extravasation [Unknown]
  - Insomnia [Unknown]
  - Oxygen saturation decreased [Unknown]
  - Decreased appetite [Unknown]
  - Oedema [Unknown]
  - Haematocrit decreased [Unknown]
  - Anxiety [Unknown]
  - Swelling [Unknown]
  - Infusion site extravasation [Unknown]
  - Cough [Unknown]
  - Hypertension [Unknown]
  - Pain in extremity [Recovered/Resolved]
  - Chills [Unknown]
  - Malaise [Unknown]
  - Tachycardia [Unknown]
  - Vomiting [Unknown]
  - Chest discomfort [Unknown]
  - Hypotension [Recovered/Resolved]
  - Migraine [Unknown]
  - Dizziness [Recovered/Resolved]
  - Myalgia [Unknown]
  - Diarrhoea [Unknown]
  - Headache [Recovered/Resolved]
  - Nausea [Unknown]
  - Pruritus [Not Recovered/Not Resolved]
  - Upper respiratory tract infection [Unknown]
  - Pain [Recovered/Resolved]
  - Dyspnoea [Unknown]
  - Fatigue [Recovering/Resolving]
